FAERS Safety Report 7993902-0 (Version None)
Quarter: 2011Q4

REPORT INFORMATION
  Report Type: 
  Country: None (occurrence: None)
  Receive Date: 20111215
  Receipt Date: 20111212
  Transmission Date: 20120403
  Serious: Yes (Other)
  Sender: FDA-Public Use
  Company Number: A0950614A

PATIENT
  Age: 87 Year
  Sex: Female

DRUGS (2)
  1. FLUTICASONE PROPIONATE [Concomitant]
  2. CAMPHOR + MENTHOL (FORMULATION UNKNOWN) (CAMPHOR + MENTHOL) [Suspect]
     Indication: ECZEMA

REACTIONS (7)
  - ASTHMA [None]
  - CHEST DISCOMFORT [None]
  - DRUG INEFFECTIVE [None]
  - DRUG ADMINISTRATION ERROR [None]
  - DYSPNOEA [None]
  - SWOLLEN TONGUE [None]
  - TONGUE PRURITUS [None]
